FAERS Safety Report 22953620 (Version 2)
Quarter: 2023Q4

REPORT INFORMATION
  Report Type: Spontaneous
  Country: US (occurrence: US)
  Receive Date: 20230918
  Receipt Date: 20231004
  Transmission Date: 20240110
  Serious: No
  Sender: FDA-Public Use
  Company Number: US-INCYTE CORPORATION-2023IN008499

PATIENT

DRUGS (5)
  1. JAKAFI [Suspect]
     Active Substance: RUXOLITINIB
     Indication: Myelofibrosis
     Dosage: 20 MILLIGRAMIN  THE MORNING
     Route: 048
     Dates: start: 20221121
  2. JAKAFI [Suspect]
     Active Substance: RUXOLITINIB
     Dosage: 10 MILLIGRAM IN THE EVENING
     Route: 048
     Dates: start: 20221028
  3. JAKAFI [Suspect]
     Active Substance: RUXOLITINIB
     Dosage: 20 MILLIGRAM IN THE MORNING
     Route: 048
     Dates: start: 20221028
  4. JAKAFI [Suspect]
     Active Substance: RUXOLITINIB
     Dosage: 10 MILLIGRAM IN THE EVENING
     Route: 048
     Dates: start: 20221028
  5. JAKAFI [Suspect]
     Active Substance: RUXOLITINIB
     Dosage: 10 MILLIGRAM, BID
     Route: 048
     Dates: start: 20221028

REACTIONS (5)
  - Insomnia [Unknown]
  - Paraesthesia [Unknown]
  - Skin burning sensation [Unknown]
  - Laboratory test abnormal [Unknown]
  - Herpes zoster [Not Recovered/Not Resolved]
